FAERS Safety Report 6141339-1 (Version None)
Quarter: 2009Q2

REPORT INFORMATION
  Report Type: 
  Country: None (occurrence: None)
  Receive Date: 20090402
  Receipt Date: 20090323
  Transmission Date: 20091009
  Serious: Yes (Hospitalization, Other)
  Sender: FDA-Public Use
  Company Number: US-ROCHE-623868

PATIENT
  Age: 59 Year
  Sex: Female

DRUGS (12)
  1. CAPECITABINE [Suspect]
     Route: 065
  2. BEVACIZUMAB [Suspect]
     Route: 065
  3. CETUXIMAB [Suspect]
     Route: 042
  4. PANITUMUMAB [Suspect]
     Route: 042
  5. FLUOROURACIL [Concomitant]
  6. IRINOTECAN HCL [Concomitant]
  7. LEUCOVORIN CALCIUM [Concomitant]
  8. DEXAMETHASONE TAB [Concomitant]
  9. DIPHENHYDRAMINE [Concomitant]
  10. ACETAMINOPHEN [Concomitant]
  11. RANITIDINE [Concomitant]
  12. PALONOSETRON [Concomitant]

REACTIONS (2)
  - DISEASE PROGRESSION [None]
  - INFUSION RELATED REACTION [None]
